FAERS Safety Report 9617397 (Version 2)
Quarter: 2014Q1

REPORT INFORMATION
  Report Type: Spontaneous
  Country: FR (occurrence: FR)
  Receive Date: 20131011
  Receipt Date: 20140121
  Transmission Date: 20141002
  Serious: Yes (Death, Hospitalization)
  Sender: FDA-Public Use
  Company Number: FR-JNJFOC-20131006831

PATIENT
  Age: 91 Year
  Sex: Male

DRUGS (11)
  1. XARELTO [Suspect]
     Indication: PRODUCT USED FOR UNKNOWN INDICATION
     Route: 048
  2. XARELTO [Suspect]
     Indication: PRODUCT USED FOR UNKNOWN INDICATION
     Route: 048
     Dates: start: 20130128, end: 20130913
  3. XARELTO [Suspect]
     Indication: PRODUCT USED FOR UNKNOWN INDICATION
     Route: 048
     Dates: start: 201307
  4. XARELTO [Suspect]
     Indication: ATRIAL FIBRILLATION
     Route: 048
  5. XARELTO [Suspect]
     Indication: ATRIAL FIBRILLATION
     Route: 048
     Dates: start: 20130128, end: 20130913
  6. XARELTO [Suspect]
     Indication: ATRIAL FIBRILLATION
     Route: 048
     Dates: start: 201307
  7. XARELTO [Suspect]
     Indication: CEREBROVASCULAR ACCIDENT PROPHYLAXIS
     Route: 048
     Dates: start: 20130128, end: 20130913
  8. XARELTO [Suspect]
     Indication: CEREBROVASCULAR ACCIDENT PROPHYLAXIS
     Route: 048
     Dates: start: 201307
  9. XARELTO [Suspect]
     Indication: CEREBROVASCULAR ACCIDENT PROPHYLAXIS
     Route: 048
  10. CALCIPARINE [Concomitant]
     Route: 065
     Dates: start: 20130918
  11. ASPEGIC [Concomitant]
     Route: 065

REACTIONS (10)
  - Motor dysfunction [Fatal]
  - Cerebral haematoma [Fatal]
  - Monoplegia [Fatal]
  - Loss of consciousness [Fatal]
  - Ischaemic stroke [Fatal]
  - Aphasia [Fatal]
  - Aphasia [Fatal]
  - Fall [Unknown]
  - Drug ineffective [Unknown]
  - Incorrect dose administered [Unknown]
